FAERS Safety Report 13775082 (Version 2)
Quarter: 2017Q3

REPORT INFORMATION
  Report Type: Report from Study
  Country: BR (occurrence: BR)
  Receive Date: 20170720
  Receipt Date: 20170728
  Transmission Date: 20171127
  Serious: Yes (Hospitalization, Other)
  Sender: FDA-Public Use
  Company Number: BR-AMGEN-BRASL2017092877

PATIENT
  Age: 53 Year
  Sex: Female
  Weight: 80 kg

DRUGS (9)
  1. AMITRIPTYLINE [Concomitant]
     Active Substance: AMITRIPTYLINE
     Dosage: UNK UNK, TID
  2. FUROSEMIDE. [Concomitant]
     Active Substance: FUROSEMIDE
     Dosage: 20 MG, BID
  3. CLONIDINE HYDROCHLORIDE. [Concomitant]
     Active Substance: CLONIDINE HYDROCHLORIDE
  4. REPATHA [Suspect]
     Active Substance: EVOLOCUMAB
     Indication: BLOOD CHOLESTEROL ABNORMAL
     Dosage: 140 MG, Q2WK
     Route: 065
  5. SPIRONOLACTONE. [Concomitant]
     Active Substance: SPIRONOLACTONE
  6. DESERILA [Concomitant]
     Active Substance: METHYSERGIDE MALEATE
  7. ATENSINA [Concomitant]
     Active Substance: CLONIDINE
     Dosage: 200 MG, QD
  8. DILTIAZEM. [Concomitant]
     Active Substance: DILTIAZEM
  9. CARDIZEM [Concomitant]
     Active Substance: DILTIAZEM HYDROCHLORIDE
     Dosage: UNK UNK, TID

REACTIONS (5)
  - Hospitalisation [Not Recovered/Not Resolved]
  - Cardiac disorder [Recovered/Resolved]
  - Memory impairment [Not Recovered/Not Resolved]
  - Swelling [Unknown]
  - Fatigue [Not Recovered/Not Resolved]

NARRATIVE: CASE EVENT DATE: 201706
